FAERS Safety Report 4415452-0 (Version None)
Quarter: 2004Q2

REPORT INFORMATION
  Report Type: 
  Country: None (occurrence: None)
  Receive Date: 20040621
  Receipt Date: 20031215
  Transmission Date: 20050107
  Serious: Yes (Death)
  Sender: FDA-Public Use
  Company Number: USA-2003-0012091

PATIENT
  Age: 36 Year
  Sex: Male
  Weight: 80.3 kg

DRUGS (5)
  1. HYDROCODONE BITARTRATE (SIMILAR TO IND 59175) (HYDROCODONE BITARTRATE) [Suspect]
  2. COCAINE (COCAINE) [Suspect]
  3. METOPROLOL TARTRATE [Suspect]
  4. CAFFEINE (CAFFEINE) [Suspect]
  5. NICOTINE [Suspect]

REACTIONS (2)
  - ACCIDENTAL OVERDOSE [None]
  - MULTIPLE DRUG OVERDOSE [None]
